APPROVED DRUG PRODUCT: ESMOLOL HYDROCHLORIDE
Active Ingredient: ESMOLOL HYDROCHLORIDE
Strength: 10MG/ML
Dosage Form/Route: INJECTABLE;INJECTION
Application: A076323 | Product #001 | TE Code: AP
Applicant: HIKMA PHARMACEUTICALS USA INC
Approved: Aug 10, 2004 | RLD: No | RS: No | Type: RX